FAERS Safety Report 7816289-2 (Version None)
Quarter: 2011Q4

REPORT INFORMATION
  Report Type: 
  Country: None (occurrence: None)
  Receive Date: 20111016
  Receipt Date: 20110921
  Transmission Date: 20120403
  Serious: Yes (Hospitalization)
  Sender: FDA-Public Use
  Company Number: JP-ROCHE-795428

PATIENT
  Age: 84 Year
  Sex: Male

DRUGS (4)
  1. DISOPYRAMIDE [Concomitant]
  2. VERAPAMIL HCL [Concomitant]
     Route: 048
  3. WARFARIN SODIUM [Concomitant]
     Route: 048
     Dates: start: 20090301
  4. TORSEMIDE [Suspect]
     Indication: OEDEMA DUE TO CARDIAC DISEASE
     Route: 048
     Dates: start: 20090630, end: 20091001

REACTIONS (1)
  - PEMPHIGUS [None]
